FAERS Safety Report 5337288-9 (Version None)
Quarter: 2007Q2

REPORT INFORMATION
  Report Type: 
  Country: None (occurrence: None)
  Receive Date: 20070529
  Receipt Date: 20070521
  Transmission Date: 20071010
  Serious: Yes (Other)
  Sender: FDA-Public Use
  Company Number: B0472596A

PATIENT
  Age: 69 Year
  Sex: Male

DRUGS (1)
  1. AUGMENTIN '125' [Suspect]
     Route: 065
     Dates: start: 20070206, end: 20070206

REACTIONS (3)
  - ANAPHYLACTIC SHOCK [None]
  - HISTAMINE LEVEL INCREASED [None]
  - TRYPTASE INCREASED [None]
